FAERS Safety Report 9521182 (Version 1)
Quarter: 2013Q3

REPORT INFORMATION
  Report Type: Spontaneous
  Country: US (occurrence: None)
  Receive Date: 20130911
  Receipt Date: 20130911
  Transmission Date: 20140515
  Serious: Yes (Hospitalization)
  Sender: FDA-Public Use
  Company Number: SYM-2013-10479

PATIENT
  Age: 61 Year
  Sex: Male

DRUGS (5)
  1. FLUOROURACIL (FLUOROURACIL) (FLUOROURACIL) [Suspect]
     Indication: GASTRIC CANCER STAGE IV
  2. CAPECITABINE (CAPECITABINE) (CAPECITABINE) [Suspect]
     Indication: GASTRIC CANCER STAGE IV
     Route: 048
  3. LEUCOVORIN (FOLINIC ACID) (FOLINIC ACID) [Concomitant]
  4. CISPLATIN (CISPLATIN) (CISPLATIN) [Concomitant]
  5. EPIRUBICIN (EPIRUBICIN) (EPIRUBICIN) [Concomitant]

REACTIONS (5)
  - Cardiotoxicity [None]
  - Blood creatine phosphokinase increased [None]
  - Blood creatine phosphokinase MB increased [None]
  - Electrocardiogram change [None]
  - Ventricular tachycardia [None]
